FAERS Safety Report 7448326-1 (Version None)
Quarter: 2011Q2

REPORT INFORMATION
  Report Type: 
  Country: None (occurrence: None)
  Receive Date: 20110429
  Receipt Date: 20110420
  Transmission Date: 20111010
  Serious: Yes (Hospitalization)
  Sender: FDA-Public Use
  Company Number: US-ASTRAZENECA-2011SE23083

PATIENT
  Age: 75 Year
  Sex: Female

DRUGS (8)
  1. CRESTOR [Suspect]
     Indication: HYPERCHOLESTEROLAEMIA
     Route: 048
  2. MIRALAX [Concomitant]
     Dosage: EVERY MORNING
  3. METFORMIN [Concomitant]
  4. SENOKOT [Concomitant]
  5. GLIPIZIDE [Concomitant]
  6. METAMUCIL-2 [Concomitant]
     Dosage: EVERY MORNING
  7. ATACAND [Suspect]
     Indication: HYPERTENSION
     Route: 048
  8. AMITIZA [Concomitant]
     Dosage: BEFORE MEAL IN THE MORNING AND EVENING

REACTIONS (3)
  - CONSTIPATION [None]
  - DIABETES MELLITUS [None]
  - GASTROINTESTINAL DISORDER [None]
